FAERS Safety Report 13087155 (Version 1)
Quarter: 2017Q1

REPORT INFORMATION
  Report Type: Spontaneous
  Country: PE (occurrence: PE)
  Receive Date: 20170105
  Receipt Date: 20170105
  Transmission Date: 20170428
  Serious: Yes (Hospitalization, Other)
  Sender: FDA-Public Use
  Company Number: PE-AMGEN-PERSP2016185735

PATIENT
  Age: 81 Year
  Sex: Female

DRUGS (7)
  1. PROLIA [Suspect]
     Active Substance: DENOSUMAB
     Dosage: 60 MG/ML, CYCLICAL
     Route: 058
     Dates: start: 20120905
  2. PROLIA [Suspect]
     Active Substance: DENOSUMAB
     Dosage: 60 MG/ML, CYCLICAL
     Route: 058
     Dates: start: 20131010
  3. PROLIA [Suspect]
     Active Substance: DENOSUMAB
     Dosage: 60 MG/ML, CYCLICAL
     Route: 058
     Dates: start: 20140509
  4. PROLIA [Suspect]
     Active Substance: DENOSUMAB
     Dosage: 60 MG/ML, CYCLICAL
     Route: 058
     Dates: start: 20130402
  5. PROLIA [Suspect]
     Active Substance: DENOSUMAB
     Dosage: 60 MG/ML, CYCLICAL
     Route: 058
     Dates: start: 20160803
  6. PROLIA [Suspect]
     Active Substance: DENOSUMAB
     Indication: OSTEOPOROSIS
     Dosage: 60 MG/ML, CYCLICAL
     Route: 058
     Dates: start: 20120228
  7. PROLIA [Suspect]
     Active Substance: DENOSUMAB
     Dosage: 60 MG/ML, CYCLICAL
     Route: 058
     Dates: start: 20160202

REACTIONS (3)
  - Device related infection [Not Recovered/Not Resolved]
  - Inappropriate schedule of drug administration [Unknown]
  - Treatment noncompliance [Unknown]
